FAERS Safety Report 7840948-9 (Version None)
Quarter: 2011Q4

REPORT INFORMATION
  Report Type: 
  Country: None (occurrence: None)
  Receive Date: 20111021
  Receipt Date: 20111021
  Transmission Date: 20120403
  Serious: Yes (Hospitalization, Other)
  Sender: FDA-Public Use
  Company Number: None

PATIENT
  Sex: Female
  Weight: 58.514 kg

DRUGS (4)
  1. CIPRO [Suspect]
     Indication: URINARY TRACT INFECTION
     Dates: start: 20060126
  2. CIPRO [Suspect]
     Indication: VAGINAL PROLAPSE
     Dates: start: 20060126
  3. CIPRO [Suspect]
     Indication: URINARY TRACT INFECTION
     Dates: start: 20060201
  4. CIPRO [Suspect]
     Indication: VAGINAL PROLAPSE
     Dates: start: 20060201

REACTIONS (1)
  - TENDON OPERATION [None]
